FAERS Safety Report 7778713-3 (Version None)
Quarter: 2011Q3

REPORT INFORMATION
  Report Type: 
  Country: None (occurrence: None)
  Receive Date: 20110926
  Receipt Date: 20110913
  Transmission Date: 20111222
  Serious: Yes (Other)
  Sender: FDA-Public Use
  Company Number: CA-JNJFOC-20110906662

PATIENT
  Sex: Female
  Weight: 52 kg

DRUGS (4)
  1. SIMPONI [Suspect]
     Indication: PRODUCT USED FOR UNKNOWN INDICATION
     Route: 058
  2. METHOTREXATE [Concomitant]
     Dosage: 0.6
     Route: 058
  3. REMICADE [Suspect]
     Indication: PRODUCT USED FOR UNKNOWN INDICATION
     Route: 042
     Dates: end: 20110719
  4. ASACOL [Concomitant]
     Dosage: 2-400 MG
     Route: 048

REACTIONS (2)
  - DRUG SPECIFIC ANTIBODY PRESENT [None]
  - LUPUS-LIKE SYNDROME [None]
